FAERS Safety Report 21392013 (Version 2)
Quarter: 2022Q3

REPORT INFORMATION
  Report Type: Spontaneous
  Country: SE (occurrence: SE)
  Receive Date: 20220929
  Receipt Date: 20220930
  Transmission Date: 20221027
  Serious: Yes (Other)
  Sender: FDA-Public Use
  Company Number: SE-Eisai Medical Research-EC-2022-124582

PATIENT
  Age: 64 Year
  Sex: Male

DRUGS (1)
  1. FYCOMPA [Suspect]
     Active Substance: PERAMPANEL
     Indication: Product use in unapproved indication
     Dosage: DOSE AND FREQUENCY UNKNOWN
     Route: 048
     Dates: end: 202109

REACTIONS (21)
  - Stevens-Johnson syndrome [Recovered/Resolved]
  - Cognitive disorder [Unknown]
  - Dizziness [Unknown]
  - Confusional state [Unknown]
  - Gait disturbance [Unknown]
  - Dysarthria [Unknown]
  - Aggression [Unknown]
  - Tremor [Unknown]
  - Allergy to arthropod bite [Unknown]
  - Intra-abdominal haematoma [Unknown]
  - Oropharyngeal pain [Unknown]
  - Goitre [Unknown]
  - Tooth disorder [Unknown]
  - Eye swelling [Unknown]
  - Scar [Unknown]
  - Suicidal ideation [Unknown]
  - Fungal skin infection [Unknown]
  - Eczema [Unknown]
  - Pruritus [Unknown]
  - Basal cell carcinoma [Unknown]
  - Product use in unapproved indication [Recovered/Resolved]

NARRATIVE: CASE EVENT DATE: 20210828
